FAERS Safety Report 12854550 (Version 1)
Quarter: 2016Q4

REPORT INFORMATION
  Report Type: Spontaneous
  Country: US (occurrence: US)
  Receive Date: 20161017
  Receipt Date: 20161017
  Transmission Date: 20170207
  Serious: No
  Sender: FDA-Public Use
  Company Number: US-BAYER-2016-198648

PATIENT
  Age: 71 Year
  Sex: Female
  Weight: 58.96 kg

DRUGS (6)
  1. VITAMIN B NOS [Concomitant]
     Active Substance: VITAMIN B
  2. CLARITIN [Suspect]
     Active Substance: LORATADINE
     Indication: HEADACHE
  3. LISINOPRIL. [Concomitant]
     Active Substance: LISINOPRIL
  4. CLARITIN [Suspect]
     Active Substance: LORATADINE
     Indication: HYPERSENSITIVITY
     Dosage: 1 DF, UNK
     Route: 048
  5. CLARITIN [Suspect]
     Active Substance: LORATADINE
     Indication: NASOPHARYNGITIS
  6. ZYRTEC [Concomitant]
     Active Substance: CETIRIZINE HYDROCHLORIDE

REACTIONS (1)
  - Drug ineffective [Unknown]
